APPROVED DRUG PRODUCT: CLADRIBINE
Active Ingredient: CLADRIBINE
Strength: 10MG
Dosage Form/Route: TABLET;ORAL
Application: A218425 | Product #001 | TE Code: AB
Applicant: APOTEX INC
Approved: Nov 24, 2025 | RLD: No | RS: No | Type: RX